FAERS Safety Report 7075323-0 (Version None)
Quarter: 2010Q4

REPORT INFORMATION
  Report Type: 
  Country: None (occurrence: None)
  Receive Date: 20101030
  Receipt Date: 20100921
  Transmission Date: 20110411
  Serious: No
  Sender: FDA-Public Use
  Company Number: US-WYE-H16852710

PATIENT
  Sex: Female
  Weight: 89.89 kg

DRUGS (9)
  1. PRISTIQ [Suspect]
     Indication: DEPRESSION
     Dates: start: 20100501, end: 20100501
  2. PRISTIQ [Suspect]
     Dates: start: 20100501
  3. SINGULAIR [Concomitant]
  4. LOSARTAN [Concomitant]
  5. PROTONIX [Concomitant]
  6. HYDROCODONE BITARTRATE + ACETAMINOPHEN [Concomitant]
  7. XANAX [Concomitant]
  8. VERAPAMIL [Concomitant]
  9. ADVAIR DISKUS 100/50 [Concomitant]

REACTIONS (2)
  - INCREASED APPETITE [None]
  - WEIGHT INCREASED [None]
